FAERS Safety Report 5300260-9 (Version None)
Quarter: 2007Q2

REPORT INFORMATION
  Report Type: 
  Country: None (occurrence: None)
  Receive Date: 20070418
  Receipt Date: 20070409
  Transmission Date: 20071010
  Serious: Yes (Other)
  Sender: FDA-Public Use
  Company Number: 2007UW04228

PATIENT
  Age: 64 Year
  Sex: Female
  Weight: 80.7 kg

DRUGS (13)
  1. ARIMIDEX [Suspect]
     Indication: BREAST CANCER FEMALE
     Route: 048
     Dates: start: 20050701, end: 20070201
  2. PROPRANOLOL [Concomitant]
     Route: 048
  3. PREVACID [Concomitant]
     Route: 048
  4. ALPRAZOLAM [Concomitant]
     Route: 048
  5. LYRICA [Concomitant]
     Route: 048
  6. NEURONTIN [Concomitant]
     Route: 048
  7. METHYLPHENIDATE HCL [Concomitant]
     Route: 048
  8. OXYCONTIN [Concomitant]
     Route: 048
  9. VITAMIN B-12 [Concomitant]
     Route: 060
  10. PROMETHAZINE [Concomitant]
     Route: 048
  11. EFFEXOR XR [Concomitant]
     Route: 048
  12. HYDROCODONE-GUAIFENESIN [Concomitant]
     Route: 048
  13. VITAMIN B6 [Concomitant]
     Route: 048

REACTIONS (8)
  - DEPRESSION [None]
  - HOT FLUSH [None]
  - MUSCULOSKELETAL STIFFNESS [None]
  - NEUROPATHY [None]
  - PAIN [None]
  - PAIN IN EXTREMITY [None]
  - PERIPHERAL MOTOR NEUROPATHY [None]
  - RASH [None]
